FAERS Safety Report 9097627 (Version 3)
Quarter: 2013Q1

REPORT INFORMATION
  Report Type: Report from Study
  Country: FR (occurrence: FR)
  Receive Date: 20130212
  Receipt Date: 20130311
  Transmission Date: 20140127
  Serious: Yes (Hospitalization, Other)
  Sender: FDA-Public Use
  Company Number: PHHO2013FR002343

PATIENT
  Age: 83 Year
  Sex: Male
  Weight: 71 kg

DRUGS (9)
  1. AMN107 [Suspect]
     Indication: MALIGNANT MELANOMA
     Dosage: 400 MG, BID
     Route: 048
     Dates: start: 20120618, end: 20130203
  2. METFORMIN [Concomitant]
     Indication: TYPE 2 DIABETES MELLITUS
     Dosage: 850 MG, UNK
     Route: 048
  3. RAMIPRIL [Concomitant]
     Indication: HYPERTENSION
     Dosage: 10 MG, UNK
     Route: 048
  4. OMEXEL [Concomitant]
     Indication: BENIGN PROSTATIC HYPERPLASIA
     Dosage: 0.4 MG, UNK
     Route: 048
  5. ETIOVEN [Concomitant]
     Indication: VENOUS INSUFFICIENCY
     Dosage: 30 MG, UNK
     Route: 048
  6. VOLTARENE ^CIBA-GEIGY^ [Concomitant]
     Indication: RHEUMATIC DISORDER
     Dosage: UNK
     Route: 003
  7. NOCTAMIDE [Concomitant]
     Indication: INSOMNIA
     Dosage: 1 MG, UNK
     Route: 048
  8. SPASFON [Concomitant]
     Indication: ABDOMINAL PAIN
     Dosage: 6 CUP, UNK
     Route: 048
  9. ENDOXAN [Concomitant]
     Indication: ARTHRITIS
     Dosage: 25 MG, UNK
     Route: 048

REACTIONS (1)
  - Aortic stenosis [Not Recovered/Not Resolved]
